FAERS Safety Report 7023256-8 (Version None)
Quarter: 2010Q3

REPORT INFORMATION
  Report Type: 
  Country: None (occurrence: None)
  Receive Date: 20100930
  Receipt Date: 20100921
  Transmission Date: 20110219
  Serious: Yes (Other)
  Sender: FDA-Public Use
  Company Number: US-ABBOTT-07P-163-0408224-00

PATIENT
  Sex: Male
  Weight: 102.15 kg

DRUGS (9)
  1. NIASPAN [Suspect]
     Indication: LOW DENSITY LIPOPROTEIN INCREASED
     Route: 048
     Dates: start: 20061106, end: 20061222
  2. TRICOR [Concomitant]
     Indication: BLOOD CHOLESTEROL INCREASED
     Route: 048
  3. GLUCOPHAGE [Concomitant]
     Indication: DIABETES MELLITUS
     Route: 048
  4. BENICAR [Concomitant]
     Indication: BLOOD PRESSURE INCREASED
     Route: 048
  5. OMEGA FISH OIL [Concomitant]
     Indication: SUPPLEMENTATION THERAPY
     Route: 048
  6. GARLIC [Concomitant]
     Indication: SUPPLEMENTATION THERAPY
     Route: 048
  7. ACETYLSALICYLIC ACID SRT [Concomitant]
     Indication: PROPHYLAXIS
     Route: 048
  8. ACETYLSALICYLIC ACID SRT [Concomitant]
     Indication: FLUSHING
  9. M.V.I. [Concomitant]
     Indication: VITAMIN SUPPLEMENTATION

REACTIONS (7)
  - ANAPHYLACTIC REACTION [None]
  - FAECAL INCONTINENCE [None]
  - FEELING HOT [None]
  - FLUSHING [None]
  - HEAD INJURY [None]
  - LOSS OF CONSCIOUSNESS [None]
  - URINARY INCONTINENCE [None]
